FAERS Safety Report 5076231-7 (Version None)
Quarter: 2006Q3

REPORT INFORMATION
  Report Type: 
  Country: None (occurrence: None)
  Receive Date: 20060804
  Receipt Date: 20060724
  Transmission Date: 20061208
  Serious: Yes (Congenital Anomaly, Other)
  Sender: FDA-Public Use
  Company Number: 2006060503

PATIENT
  Age: 68 Year
  Sex: Female
  Weight: 63.8 kg

DRUGS (1)
  1. SUTENT [Suspect]
     Indication: GASTROINTESTINAL STROMAL TUMOUR
     Dosage: 37.5 MG (INTERVAL:  EVERYDAY), ORAL
     Route: 048
     Dates: start: 20060214, end: 20060423

REACTIONS (3)
  - BLOOD ALBUMIN DECREASED [None]
  - PLEURAL EFFUSION [None]
  - THROMBOCYTOPENIA [None]
